FAERS Safety Report 5024587-3 (Version None)
Quarter: 2006Q2

REPORT INFORMATION
  Report Type: 
  Country: None (occurrence: None)
  Receive Date: 20060607
  Receipt Date: 20060525
  Transmission Date: 20061013
  Serious: Yes (Life-Threatening, Hospitalization, Other)
  Sender: FDA-Public Use
  Company Number: 2006062610

PATIENT
  Age: 61 Year
  Sex: Male
  Weight: 65 kg

DRUGS (8)
  1. ATARAX [Suspect]
     Indication: PREOPERATIVE CARE
     Dosage: 25 MG (25 MG, ONCE) , INTRAMUSCULAR
     Route: 030
     Dates: start: 20060510, end: 20060510
  2. ATROPINE [Suspect]
     Indication: PREOPERATIVE CARE
     Dosage: 0.5 MG (0.5 MG, ONCE) INTRAMUSCULAR
     Route: 030
     Dates: start: 20060510, end: 20060510
  3. RINGER-LACTATE SOLUTION (CALCIUM CHLORIDE DIHYDRATE, POTASSIUM CHLORID [Concomitant]
  4. HARTMANN'S SOLUTION (CALCIUM CHLORIDE DIHYDRATE, POTASSIUM CHLORIDE, S [Concomitant]
  5. CEFPIRAMIDE SODIUM [Concomitant]
  6. NORNICICAMIN (CYANOCOBALAMIN, PYRIDOXINE HYDROCHLORIDE, THIAMINE DISUL [Concomitant]
  7. PENTAZOCINE LACTATE [Concomitant]
  8. SULPYRINE (METAMIZOLE SODIUM) [Concomitant]

REACTIONS (2)
  - ANAPHYLACTOID SHOCK [None]
  - PROCEDURAL COMPLICATION [None]
